FAERS Safety Report 5568351-5 (Version None)
Quarter: 2007Q4

REPORT INFORMATION
  Report Type: 
  Country: None (occurrence: None)
  Receive Date: 20071220
  Receipt Date: 20071220
  Transmission Date: 20080405
  Serious: Yes (Hospitalization, Disabling)
  Sender: FDA-Public Use
  Company Number: PHHO2005GB11214

PATIENT
  Age: 82 Year
  Sex: Female
  Weight: 43.6 kg

DRUGS (12)
  1. ZOLEDRONIC ACID [Suspect]
     Indication: OSTEOPOROTIC FRACTURE
     Dosage: DOUBLE BLIND
     Route: 042
     Dates: start: 20040828
  2. ZOLEDRONIC ACID [Suspect]
     Dosage: 5MG, ONCE YEARLY
  3. VITAMIN D [Concomitant]
     Indication: OSTEOPOROTIC FRACTURE
     Dates: start: 20040625
  4. CALCIUM CARBONATE [Concomitant]
     Indication: OSTEOPOROTIC FRACTURE
     Dates: start: 20040625
  5. ACETAMINOPHEN W/ CODEINE [Concomitant]
  6. CABERGOLINE [Concomitant]
  7. SINEMET [Concomitant]
  8. DILTIAZEM [Concomitant]
  9. MADOPAR [Concomitant]
  10. BENDROFLUMETHIAZIDE [Concomitant]
  11. ASPIRIN [Concomitant]
  12. OMEPRAZOLE [Concomitant]

REACTIONS (6)
  - ARTHRALGIA [None]
  - BONE DISORDER [None]
  - DISEASE PROGRESSION [None]
  - HIP ARTHROPLASTY [None]
  - HIP FRACTURE [None]
  - OSTEONECROSIS [None]
